FAERS Safety Report 11994365 (Version 1)
Quarter: 2016Q1

REPORT INFORMATION
  Report Type: Spontaneous
  Country: BR (occurrence: BR)
  Receive Date: 20160203
  Receipt Date: 20160203
  Transmission Date: 20160526
  Serious: Yes (Life-Threatening, Other)
  Sender: FDA-Public Use
  Company Number: BR-JNJFOC-20160124254

PATIENT
  Sex: Male

DRUGS (1)
  1. DUROGESIC D-TRANS [Suspect]
     Active Substance: FENTANYL
     Indication: PROCEDURAL PAIN
     Route: 062

REACTIONS (6)
  - Faecaloma [Unknown]
  - Intestinal obstruction [Recovered/Resolved]
  - Urinary retention [Recovered/Resolved]
  - Depressed level of consciousness [Unknown]
  - Drug prescribing error [Unknown]
  - Renal disorder [Unknown]
